FAERS Safety Report 7262575-7 (Version None)
Quarter: 2011Q1

REPORT INFORMATION
  Report Type: 
  Country: None (occurrence: None)
  Receive Date: 20110130
  Receipt Date: 20100912
  Transmission Date: 20110831
  Serious: No
  Sender: FDA-Public Use
  Company Number: US-ABBOTT-10P-163-0670436-00

PATIENT
  Age: 26 Year
  Sex: Female

DRUGS (2)
  1. HUMIRA [Suspect]
     Indication: CROHN'S DISEASE
     Dates: start: 20070101
  2. NORCO [Concomitant]
     Indication: ARTHRALGIA

REACTIONS (3)
  - COUGH [None]
  - NASOPHARYNGITIS [None]
  - INCREASED UPPER AIRWAY SECRETION [None]
